FAERS Safety Report 8739380 (Version 2)
Quarter: 2014Q3

REPORT INFORMATION
  Report Type: Report from Study
  Country: US (occurrence: US)
  Receive Date: 20120823
  Receipt Date: 20140829
  Transmission Date: 20150326
  Serious: Yes (Other)
  Sender: FDA-Public Use
  Company Number: US-ELI_LILLY_AND_COMPANY-US201208004782

PATIENT
  Age: 63 Year
  Sex: Female

DRUGS (3)
  1. TERIPARATIDE [Suspect]
     Active Substance: TERIPARATIDE
     Dosage: 20 UG, QD
     Route: 058
     Dates: start: 20140621
  2. TERIPARATIDE [Suspect]
     Active Substance: TERIPARATIDE
     Indication: OSTEOPOROSIS
     Dosage: 20 UG, QD
     Route: 058
     Dates: end: 201106
  3. TERIPARATIDE [Suspect]
     Active Substance: TERIPARATIDE
     Dosage: 20 UG, QD
     Route: 058
     Dates: end: 201405

REACTIONS (11)
  - Limb discomfort [Unknown]
  - Osteoporosis [Not Recovered/Not Resolved]
  - Urethral stenosis [Unknown]
  - Parkinson^s disease [Unknown]
  - Feeling abnormal [Unknown]
  - Incorrect drug administration duration [Unknown]
  - Asthenia [Unknown]
  - Urinary tract infection [Unknown]
  - Arthritis [Unknown]
  - Arthralgia [Unknown]
  - Diverticulitis [Unknown]

NARRATIVE: CASE EVENT DATE: 201109
